FAERS Safety Report 14615442 (Version 2)
Quarter: 2018Q1

REPORT INFORMATION
  Report Type: Report from Study
  Country: None (occurrence: US)
  Receive Date: 20180308
  Receipt Date: 20180319
  Transmission Date: 20180509
  Serious: Yes (Other)
  Sender: FDA-Public Use
  Company Number: US-ABBVIE-18S-163-2280578-00

PATIENT
  Age: 62 Year
  Sex: Male
  Weight: 98.06 kg

DRUGS (8)
  1. RAMIPRIL. [Concomitant]
     Active Substance: RAMIPRIL
     Indication: HYPERTENSION
  2. FENOFIBRATE. [Concomitant]
     Active Substance: FENOFIBRATE
     Indication: BLOOD CHOLESTEROL INCREASED
  3. HYDROCHLOROTHIAZIDE. [Concomitant]
     Active Substance: HYDROCHLOROTHIAZIDE
     Indication: FLUID RETENTION
  4. ANDROGEL [Suspect]
     Active Substance: TESTOSTERONE
     Indication: BLOOD TESTOSTERONE DECREASED
     Dosage: 4 PUMPS A DAY
     Route: 061
  5. BYSTOLIC [Concomitant]
     Active Substance: NEBIVOLOL HYDROCHLORIDE
     Indication: PRODUCT USED FOR UNKNOWN INDICATION
  6. GABAPENTIN. [Concomitant]
     Active Substance: GABAPENTIN
     Indication: DIABETIC NEUROPATHY
  7. TAMSULOSIN [Concomitant]
     Active Substance: TAMSULOSIN
     Indication: BLADDER DISORDER
  8. ATORVASTATIN [Concomitant]
     Active Substance: ATORVASTATIN
     Indication: BLOOD CHOLESTEROL INCREASED

REACTIONS (9)
  - Bladder cancer recurrent [Recovered/Resolved]
  - Prostate cancer [Not Recovered/Not Resolved]
  - Head injury [Recovered/Resolved]
  - Bladder cancer [Recovered/Resolved]
  - Thyroid mass [Recovered/Resolved]
  - Blood urine present [Recovered/Resolved]
  - Thyroid cancer [Recovering/Resolving]
  - Contusion [Recovered/Resolved]
  - Tongue neoplasm malignant stage unspecified [Not Recovered/Not Resolved]

NARRATIVE: CASE EVENT DATE: 201512
